FAERS Safety Report 4968036-X (Version None)
Quarter: 2006Q1

REPORT INFORMATION
  Report Type: 
  Country: None (occurrence: None)
  Receive Date: 20060201
  Receipt Date: 20051231
  Transmission Date: 20060701
  Serious: No
  Sender: FDA-Public Use
  Company Number: 2006PV006451

PATIENT
  Age: 71 Year
  Sex: Male
  Weight: 105.2345 kg

DRUGS (3)
  1. BYETTA [Suspect]
     Indication: DIABETES MELLITUS NON-INSULIN-DEPENDENT
     Dosage: 5 MCG;BID;SC
     Route: 058
     Dates: start: 20051220
  2. METFORMIN [Suspect]
     Indication: DIABETES MELLITUS NON-INSULIN-DEPENDENT
     Dosage: 500 MG;BID;PO
     Route: 048
     Dates: start: 20051220
  3. METAGLIP [Concomitant]

REACTIONS (2)
  - CONSTIPATION [None]
  - INJECTION SITE BRUISING [None]
